FAERS Safety Report 11244079 (Version 1)
Quarter: 2015Q3

REPORT INFORMATION
  Report Type: Spontaneous
  Country: TR (occurrence: None)
  Receive Date: 20150702
  Receipt Date: 20150702
  Transmission Date: 20151125
  Serious: Yes (Other)
  Sender: FDA-Public Use
  Company Number: None

PATIENT
  Age: 75 Year
  Sex: Female
  Weight: 100 kg

DRUGS (6)
  1. PRADAXA [Suspect]
     Active Substance: DABIGATRAN ETEXILATE MESYLATE
     Indication: ATRIAL FIBRILLATION
     Route: 048
     Dates: start: 20150623, end: 20150701
  2. BISOPROLOL [Concomitant]
     Active Substance: BISOPROLOL
  3. IRBESARTAN. [Concomitant]
     Active Substance: IRBESARTAN
  4. FUROSEMID [Concomitant]
     Active Substance: FUROSEMIDE
  5. SPRINOLACTONE [Concomitant]
  6. LEVOTIRON [Concomitant]
     Active Substance: LEVOTHYROXINE SODIUM

REACTIONS (1)
  - Tremor [None]

NARRATIVE: CASE EVENT DATE: 20150626
